FAERS Safety Report 5670278-5 (Version None)
Quarter: 2008Q1

REPORT INFORMATION
  Report Type: 
  Country: None (occurrence: None)
  Receive Date: 20080318
  Receipt Date: 20080303
  Transmission Date: 20080703
  Serious: Yes (Other)
  Sender: FDA-Public Use
  Company Number: KZ-BAYER-200814691GPV

PATIENT
  Age: 27 Year
  Sex: Female

DRUGS (1)
  1. ULTRAVIST 300 [Suspect]
     Indication: NEPHROPTOSIS
     Dosage: TOTAL DAILY DOSE: 20 ML
     Route: 040
     Dates: start: 20080229, end: 20080229

REACTIONS (5)
  - ANGINA PECTORIS [None]
  - CONFUSIONAL STATE [None]
  - HYPOAESTHESIA [None]
  - MUSCLE SPASMS [None]
  - TACHYCARDIA [None]
